FAERS Safety Report 25858034 (Version 2)
Quarter: 2025Q4

REPORT INFORMATION
  Report Type: Spontaneous
  Country: US (occurrence: US)
  Receive Date: 20250929
  Receipt Date: 20251020
  Transmission Date: 20260117
  Serious: No
  Sender: TAKEDA
  Company Number: US-TAKEDA-2025TUS084956

PATIENT
  Age: 23 Month
  Sex: Male
  Weight: 12 kg

DRUGS (1)
  1. GAMMAGARD LIQUID [Suspect]
     Active Substance: HUMAN IMMUNOGLOBULIN G
     Indication: Primary immunodeficiency syndrome
     Dosage: 6 GRAM, Q4WEEKS

REACTIONS (3)
  - No adverse event [Unknown]
  - Product prescribing issue [Unknown]
  - Off label use [Unknown]
